FAERS Safety Report 5337234-8 (Version None)
Quarter: 2007Q2

REPORT INFORMATION
  Report Type: 
  Country: None (occurrence: None)
  Receive Date: 20070529
  Receipt Date: 20070523
  Transmission Date: 20071010
  Serious: Yes (Death)
  Sender: FDA-Public Use
  Company Number: A0652995A

PATIENT
  Age: 58 Year
  Sex: Male

DRUGS (8)
  1. AVANDIA [Suspect]
     Route: 048
  2. METFORMIN HCL [Concomitant]
  3. GLYBURIDE [Concomitant]
  4. TENORMIN [Concomitant]
  5. TRAZODONE HCL [Concomitant]
  6. DIAZEPAM [Concomitant]
  7. GEMFIBROZIL [Concomitant]
  8. SERTRALINE [Concomitant]

REACTIONS (1)
  - DEATH [None]
